FAERS Safety Report 4475659-3 (Version None)
Quarter: 2004Q3

REPORT INFORMATION
  Report Type: 
  Country: None (occurrence: None)
  Receive Date: 20040923
  Receipt Date: 20040714
  Transmission Date: 20050211
  Serious: No
  Sender: FDA-Public Use
  Company Number: USA040772706

PATIENT
  Age: 90 Year
  Sex: Female

DRUGS (3)
  1. FORTEO [Suspect]
     Indication: OSTEOPOROSIS
     Dates: start: 20040622
  2. ATACARD (CANDESARTAN CILEXETIL) [Concomitant]
  3. QUININE [Concomitant]

REACTIONS (4)
  - MEDICATION ERROR [None]
  - NERVOUSNESS [None]
  - OVERDOSE [None]
  - TREMOR [None]
